FAERS Safety Report 8861370 (Version 1)
Quarter: 2012Q4

REPORT INFORMATION
  Report Type: Spontaneous
  Country: US (occurrence: None)
  Receive Date: 20121023
  Receipt Date: 20121023
  Transmission Date: 20130627
  Serious: Yes (Other)
  Sender: FDA-Public Use
  Company Number: US-TORRENT-00000438

PATIENT
  Age: 77 Year
  Sex: Female

DRUGS (1)
  1. ZOLPIDEM TARTRATE [Suspect]
     Dosage: one nightly

REACTIONS (7)
  - Fall [None]
  - Facial bones fracture [None]
  - Road traffic accident [None]
  - Amnesia [None]
  - Death of relative [None]
  - Insomnia [None]
  - Loss of employment [None]
